FAERS Safety Report 11031658 (Version 1)
Quarter: 2015Q2

REPORT INFORMATION
  Report Type: Spontaneous
  Country: US (occurrence: US)
  Receive Date: 20150415
  Receipt Date: 20150415
  Transmission Date: 20150821
  Serious: Yes (Hospitalization)
  Sender: FDA-Public Use
  Company Number: US-SA-2015SA034544

PATIENT
  Age: 45 Year
  Sex: Female

DRUGS (19)
  1. CODEINE [Suspect]
     Active Substance: CODEINE
     Indication: SURGERY
     Route: 065
     Dates: start: 1998
  2. ZETIA [Concomitant]
     Active Substance: EZETIMIBE
     Route: 048
  3. MEVACOR [Concomitant]
     Active Substance: LOVASTATIN
     Route: 048
  4. FISH OIL [Concomitant]
     Active Substance: FISH OIL
     Route: 048
  5. DEMEROL [Suspect]
     Active Substance: MEPERIDINE HYDROCHLORIDE
     Indication: SURGERY
     Route: 065
     Dates: start: 1998
  6. PROVENTIL [Concomitant]
     Active Substance: ALBUTEROL
     Indication: DYSPNOEA
     Dosage: INHALE AS NEEDED, NEBULIZER SOLUTION
  7. VENTOLINE [Concomitant]
     Active Substance: ALBUTEROL
     Indication: WHEEZING
     Dosage: INHALED AS NEEDED
  8. XANAX [Concomitant]
     Active Substance: ALPRAZOLAM
     Indication: ANXIETY
     Dosage: ONE TABLET THREE TIMES A DAY AS NEEDED
     Route: 048
  9. LYRICA [Concomitant]
     Active Substance: PREGABALIN
     Dosage: 1 CAPSULE (300MG TOTAL)
     Route: 048
  10. CELEXA [Concomitant]
     Active Substance: CITALOPRAM HYDROBROMIDE
     Route: 048
  11. MORPHINE SULFATE. [Suspect]
     Active Substance: MORPHINE SULFATE
     Indication: SURGERY
     Route: 065
     Dates: start: 1998
  12. LOPID [Concomitant]
     Active Substance: GEMFIBROZIL
     Dosage: STRENGTH:600MG
     Route: 065
  13. CENTRUM SILVER [Concomitant]
     Active Substance: VITAMINS
     Route: 048
  14. NEURONTIN [Suspect]
     Active Substance: GABAPENTIN
     Indication: SURGERY
     Route: 065
     Dates: start: 1998
  15. ESTRACE [Concomitant]
     Active Substance: ESTRADIOL
     Route: 048
  16. CALCIUM [Concomitant]
     Active Substance: CALCIUM
     Route: 048
  17. MELATONIN [Concomitant]
     Active Substance: MELATONIN
     Route: 048
  18. NEURONTIN [Suspect]
     Active Substance: GABAPENTIN
     Indication: FIBROMYALGIA
     Route: 065
     Dates: start: 1998
  19. PRILOSEC [Concomitant]
     Active Substance: OMEPRAZOLE MAGNESIUM
     Route: 048

REACTIONS (5)
  - Malaise [Unknown]
  - Vomiting [Unknown]
  - Hypersensitivity [Unknown]
  - Abdominal discomfort [Unknown]
  - Nausea [Unknown]

NARRATIVE: CASE EVENT DATE: 1998
